FAERS Safety Report 23499592 (Version 1)
Quarter: 2024Q1

REPORT INFORMATION
  Report Type: Spontaneous
  Country: US (occurrence: US)
  Receive Date: 20240208
  Receipt Date: 20240208
  Transmission Date: 20240410
  Serious: No
  Sender: FDA-Public Use
  Company Number: US-LEO Pharma-367475

PATIENT
  Age: 95 Year
  Sex: Female
  Weight: 59 kg

DRUGS (1)
  1. ADBRY [Suspect]
     Active Substance: TRALOKINUMAB-LDRM
     Indication: Psoriasis

REACTIONS (2)
  - Product use in unapproved indication [Unknown]
  - Rash [Unknown]
